FAERS Safety Report 22156399 (Version 2)
Quarter: 2023Q2

REPORT INFORMATION
  Report Type: Other
  Country: US (occurrence: None)
  Receive Date: 20230330
  Receipt Date: 20230403
  Transmission Date: 20230722
  Serious: Yes (Death)
  Sender: FDA-Public Use
  Company Number: US-ROCHE-3321464

PATIENT
  Age: 87 Year
  Sex: Female

DRUGS (1)
  1. ESBRIET [Suspect]
     Active Substance: PIRFENIDONE
     Indication: Pulmonary fibrosis
     Dosage: TAKE 1 CAPSULE BY MOUTH 3 TIMES A DAY WITH FOOD
     Route: 048

REACTIONS (1)
  - Death [Fatal]
